FAERS Safety Report 17094400 (Version 3)
Quarter: 2022Q4

REPORT INFORMATION
  Report Type: Spontaneous
  Country: AU (occurrence: AU)
  Receive Date: 20191129
  Receipt Date: 20221208
  Transmission Date: 20230112
  Serious: Yes (Life-Threatening, Other)
  Sender: FDA-Public Use
  Company Number: AU-SHIRE-AU201941242

PATIENT
  Sex: Female

DRUGS (2)
  1. CEPROTIN [Suspect]
     Active Substance: PROTEIN C
     Indication: Product used for unknown indication
     Dosage: 2000 INTERNATIONAL UNIT, 2/WEEK
     Route: 058
     Dates: start: 2014
  2. CEPROTIN [Suspect]
     Active Substance: PROTEIN C
     Dosage: UNK
     Route: 058
     Dates: start: 2014

REACTIONS (3)
  - Coagulopathy [Unknown]
  - Stress [Unknown]
  - Product dose omission issue [Unknown]
